FAERS Safety Report 7549940-5 (Version None)
Quarter: 2011Q2

REPORT INFORMATION
  Report Type: 
  Country: None (occurrence: None)
  Receive Date: 20110615
  Receipt Date: 20110601
  Transmission Date: 20111010
  Serious: Yes (Hospitalization, Disabling)
  Sender: FDA-Public Use
  Company Number: DE-GENENTECH-319860

PATIENT
  Sex: Female

DRUGS (2)
  1. RITUXAN [Suspect]
     Dosage: UNK
     Route: 042
     Dates: start: 20100504, end: 20100621
  2. RITUXAN [Suspect]
     Indication: ANAL CANCER
     Dosage: UNK
     Route: 042
     Dates: start: 20100112, end: 20100407

REACTIONS (3)
  - DEMENTIA [None]
  - SENSORIMOTOR DISORDER [None]
  - PROGRESSIVE MULTIFOCAL LEUKOENCEPHALOPATHY [None]
